FAERS Safety Report 4748260-1 (Version None)
Quarter: 2005Q3

REPORT INFORMATION
  Report Type: 
  Country: None (occurrence: None)
  Receive Date: 20050815
  Receipt Date: 20050527
  Transmission Date: 20060218
  Serious: No
  Sender: FDA-Public Use
  Company Number: USA050599259

PATIENT
  Age: 48 Year
  Sex: Male

DRUGS (3)
  1. CIALIS [Suspect]
     Indication: ERECTILE DYSFUNCTION
     Dosage: 20 MG
     Dates: start: 20050516
  2. CLONIDINE [Concomitant]
  3. CEPHALEXIN [Concomitant]

REACTIONS (1)
  - DRUG INEFFECTIVE [None]
